FAERS Safety Report 8721729 (Version 2)
Quarter: 2012Q4

REPORT INFORMATION
  Report Type: 
  Country: US (occurrence: US)
  Receive Date: 20120814
  Receipt Date: 20120913
  Transmission Date: 20130627
  Serious: No
  Sender: FDA-Public Use
  Company Number: US-PFIZER INC-2012195706

PATIENT
  Sex: Female

DRUGS (3)
  1. GABAPENTIN [Suspect]
     Dosage: 300 mg, daily
     Route: 048
  2. GABAPENTIN [Suspect]
     Dosage: 300 mg, 2x/day
     Route: 048
  3. GABAPENTIN [Suspect]
     Dosage: 300 mg, 3x/day
     Route: 048
     Dates: start: 20120808

REACTIONS (2)
  - Blepharospasm [Unknown]
  - Eye movement disorder [Unknown]
